FAERS Safety Report 7542770-X (Version None)
Quarter: 2011Q2

REPORT INFORMATION
  Report Type: 
  Country: None (occurrence: None)
  Receive Date: 20110613
  Receipt Date: 20110601
  Transmission Date: 20111010
  Serious: Yes (Hospitalization)
  Sender: FDA-Public Use
  Company Number: B0721381A

PATIENT
  Sex: Male
  Weight: 60 kg

DRUGS (4)
  1. VALTREX [Suspect]
     Indication: HERPES ZOSTER
     Dosage: 3000MG PER DAY
     Route: 048
     Dates: start: 20110507, end: 20110511
  2. AMLODIPINE [Concomitant]
     Indication: HYPERTENSION
     Dosage: 5MG PER DAY
     Route: 048
  3. ZYPREXA [Concomitant]
     Indication: DELUSION
     Dosage: 25MG PER DAY
     Route: 048
     Dates: start: 20110510, end: 20110510
  4. ARICEPT [Concomitant]
     Indication: DEMENTIA
     Dosage: 5MG PER DAY
     Route: 048

REACTIONS (5)
  - RENAL FAILURE ACUTE [None]
  - DISORIENTATION [None]
  - MUSCULAR WEAKNESS [None]
  - ALTERED STATE OF CONSCIOUSNESS [None]
  - BENIGN PROSTATIC HYPERPLASIA [None]
